FAERS Safety Report 12589623 (Version 1)
Quarter: 2016Q3

REPORT INFORMATION
  Report Type: Report from Study
  Country: US (occurrence: US)
  Receive Date: 20160725
  Receipt Date: 20160725
  Transmission Date: 20161109
  Serious: Yes (Other)
  Sender: FDA-Public Use
  Company Number: US-BIOGEN-2015BI029996

PATIENT
  Age: 51 Year
  Sex: Female

DRUGS (2)
  1. VITAMIN D [Concomitant]
     Active Substance: CHOLECALCIFEROL
     Indication: PRODUCT USED FOR UNKNOWN INDICATION
     Route: 065
     Dates: start: 2012
  2. TYSABRI [Suspect]
     Active Substance: NATALIZUMAB
     Indication: MULTIPLE SCLEROSIS
     Dosage: INFUSED OVER 1 HOUR
     Route: 042
     Dates: start: 20140327, end: 20150409

REACTIONS (4)
  - Fibrocystic breast disease [Unknown]
  - Invasive ductal breast carcinoma [Recovered/Resolved]
  - Fibroadenoma of breast [Unknown]
  - Breast hyperplasia [Unknown]

NARRATIVE: CASE EVENT DATE: 201501
